FAERS Safety Report 21901959 (Version 1)
Quarter: 2023Q1

REPORT INFORMATION
  Report Type: Spontaneous
  Country: CH (occurrence: CH)
  Receive Date: 20230124
  Receipt Date: 20230124
  Transmission Date: 20230417
  Serious: Yes (Other)
  Sender: FDA-Public Use
  Company Number: CH-002147023-NVSC2022CH285827

PATIENT
  Sex: Female

DRUGS (2)
  1. AIMOVIG [Suspect]
     Active Substance: ERENUMAB-AOOE
     Indication: Product used for unknown indication
     Dosage: UNK, QMO
     Route: 065
  2. BILASTINE [Concomitant]
     Active Substance: BILASTINE
     Indication: Product used for unknown indication
     Dosage: UNK (2-4 TIMES PER DAY)
     Route: 065

REACTIONS (4)
  - Type I hypersensitivity [Unknown]
  - Circumoral swelling [Unknown]
  - Swollen tongue [Unknown]
  - Urticaria [Unknown]

NARRATIVE: CASE EVENT DATE: 20221202
